FAERS Safety Report 4743993-5 (Version None)
Quarter: 2005Q3

REPORT INFORMATION
  Report Type: 
  Country: None (occurrence: None)
  Receive Date: 20050809
  Receipt Date: 20050728
  Transmission Date: 20060218
  Serious: Yes (Hospitalization, Other)
  Sender: FDA-Public Use
  Company Number: 2005JP001077

PATIENT
  Age: 51 Year
  Sex: Female
  Weight: 42.0031 kg

DRUGS (9)
  1. PROGRAF [Suspect]
     Indication: RHEUMATOID ARTHRITIS
     Dosage: 3.00 MG UID/QD - SEE IMAGE
     Route: 048
     Dates: start: 20050513, end: 20050522
  2. PREDNISOLONE [Suspect]
     Indication: RHEUMATOID ARTHRITIS
     Dosage: 40.00 MG ORAL
     Route: 048
     Dates: start: 20050412, end: 20050615
  3. NEORAL [Concomitant]
  4. COTRIM [Concomitant]
  5. CLARITHROMYCIN [Concomitant]
  6. LANSOPRAZOLE [Concomitant]
  7. METHYCOBAL (MECOBALAMIN) [Concomitant]
  8. RESPLEN (EPRAZINONE HYDROCHLORIDE) [Concomitant]
  9. ETODOLAC [Concomitant]

REACTIONS (10)
  - ANTIBODY TEST ABNORMAL [None]
  - BLOOD GLUCOSE INCREASED [None]
  - BLOOD LACTATE DEHYDROGENASE INCREASED [None]
  - HOT FLUSH [None]
  - HYPERCAPNIA [None]
  - IMMUNOSUPPRESSANT DRUG LEVEL INCREASED [None]
  - INSOMNIA [None]
  - INTERLEUKIN LEVEL INCREASED [None]
  - LOSS OF CONSCIOUSNESS [None]
  - RESPIRATORY DISORDER [None]
